FAERS Safety Report 23777375 (Version 3)
Quarter: 2024Q2

REPORT INFORMATION
  Report Type: Spontaneous
  Country: IT (occurrence: IT)
  Receive Date: 20240424
  Receipt Date: 20240514
  Transmission Date: 20240716
  Serious: Yes (Hospitalization, Other)
  Sender: FDA-Public Use
  Company Number: IT-Accord-420490

PATIENT
  Age: 77 Year
  Sex: Female
  Weight: 78 kg

DRUGS (6)
  1. CARBOPLATIN [Suspect]
     Active Substance: CARBOPLATIN
     Indication: Non-small cell lung cancer
     Dosage: AUC6 (417 MG, ACCORDING TO CALVERT FORMULA) ON DAY 1 EVERY 21 DAYS
  2. PEMBROLIZUMAB [Concomitant]
     Active Substance: PEMBROLIZUMAB
     Indication: Non-small cell lung cancer
     Dosage: 200 MG DOSE ON DAY 1, EVERY 21 DAYS
  3. PACLITAXEL [Concomitant]
     Active Substance: PACLITAXEL
     Indication: Non-small cell lung cancer
     Dosage: 100 MG/M2 DOSE ON DAYS 1, 8, AND 15 EVERY 21 DAYS
  4. PANTOPRAZOLE [Concomitant]
     Active Substance: PANTOPRAZOLE
  5. CARBOPLATIN [Suspect]
     Active Substance: CARBOPLATIN
     Indication: Non-small cell lung cancer
     Dosage: REDUCED BY HALF DURING THE THIRD CYCLE ON DAY 1 EVERY 21 DAYS
  6. CARBOPLATIN [Suspect]
     Active Substance: CARBOPLATIN
     Indication: Non-small cell lung cancer
     Dosage: ON DAY 1 EVERY 21 DAYS/SECOND CYCLE

REACTIONS (6)
  - Toxicity to various agents [Unknown]
  - Hypomagnesaemia [Recovered/Resolved]
  - Leukocyturia [Unknown]
  - Renal tubular necrosis [Recovered/Resolved]
  - Nephropathy toxic [Unknown]
  - Acute kidney injury [Recovered/Resolved]
